FAERS Safety Report 9640341 (Version 1)
Quarter: 2013Q4

REPORT INFORMATION
  Report Type: Report from Study
  Country: AR (occurrence: AR)
  Receive Date: 20131023
  Receipt Date: 20131023
  Transmission Date: 20140711
  Serious: Yes (Other)
  Sender: FDA-Public Use
  Company Number: PHHY2013AR119429

PATIENT
  Sex: Female

DRUGS (1)
  1. EXFORGE D [Suspect]
     Indication: HYPERTENSION
     Dosage: 1 DF (320/10/25MG) DAILY
     Route: 048

REACTIONS (1)
  - Cataract [Not Recovered/Not Resolved]
